FAERS Safety Report 6018479-0 (Version None)
Quarter: 2008Q4

REPORT INFORMATION
  Report Type: 
  Country: None (occurrence: None)
  Receive Date: 20081223
  Receipt Date: 20081215
  Transmission Date: 20090506
  Serious: Yes (Death)
  Sender: FDA-Public Use
  Company Number: US-PFIZER INC-2008154066

PATIENT
  Age: 48 Year
  Sex: Male

DRUGS (6)
  1. LITHIUM CARBONATE [Suspect]
  2. LISINOPRIL [Suspect]
  3. METFORMIN [Suspect]
  4. ALLOPURINOL [Suspect]
  5. SIMVASTATIN [Suspect]
  6. EZETIMIBE [Suspect]

REACTIONS (1)
  - DEATH [None]
